FAERS Safety Report 4496304-7 (Version None)
Quarter: 2004Q4

REPORT INFORMATION
  Report Type: 
  Country: None (occurrence: None)
  Receive Date: 20041109
  Receipt Date: 20041025
  Transmission Date: 20050328
  Serious: Yes (Death, Other)
  Sender: FDA-Public Use
  Company Number: 200420717GDDC

PATIENT
  Age: 53 Year
  Sex: Female

DRUGS (8)
  1. DOCETAXEL [Suspect]
     Indication: BREAST CANCER METASTATIC
     Route: 042
  2. RADIATION THERAPY [Concomitant]
     Indication: BREAST CANCER METASTATIC
     Dosage: DOSE: UNK
  3. DECADRON [Concomitant]
     Indication: PREMEDICATION
  4. FENTANYL [Concomitant]
     Route: 062
  5. ACETAMINOPHEN W/ PROPOXYPHENE HCL [Concomitant]
  6. PAROXETINE [Concomitant]
  7. CELECOXIB [Concomitant]
  8. RALOXIFENE HCL [Concomitant]

REACTIONS (6)
  - CYST [None]
  - EYE DISORDER [None]
  - MACULAR OEDEMA [None]
  - TREATMENT NONCOMPLIANCE [None]
  - VISION BLURRED [None]
  - VISUAL ACUITY REDUCED [None]
